FAERS Safety Report 8604915 (Version 3)
Quarter: 2013Q1

REPORT INFORMATION
  Report Type: Report from Study
  Country: US (occurrence: US)
  Receive Date: 20120608
  Receipt Date: 20130226
  Transmission Date: 20140127
  Serious: Yes (Hospitalization)
  Sender: FDA-Public Use
  Company Number: US-ROCHE-1033902

PATIENT
  Age: 48 Year
  Sex: Female

DRUGS (7)
  1. PEG-INTERFERON ALFA 2A [Suspect]
     Indication: CHRONIC HEPATITIS C
     Route: 058
     Dates: start: 20111208, end: 20111227
  2. RIBAVIRIN [Suspect]
     Indication: CHRONIC HEPATITIS C
     Route: 048
     Dates: start: 20111208, end: 20111227
  3. BLINDED BI 201335 [Suspect]
     Indication: CHRONIC HEPATITIS C
     Route: 048
     Dates: start: 20111208, end: 20111227
  4. SYNTHROID [Concomitant]
     Indication: HYPOTHYROIDISM
     Route: 048
     Dates: start: 20110101
  5. ZESTRIL [Concomitant]
     Indication: HYPERTENSION
     Route: 048
     Dates: start: 19770601
  6. ZOLOFT [Concomitant]
     Indication: DEPRESSION
     Route: 048
     Dates: start: 19770601
  7. ALLEGRA-D [Concomitant]
     Indication: SINUSITIS
     Dosage: DOSE: 60/120MG
     Route: 065
     Dates: start: 20111212

REACTIONS (4)
  - Hepatic cirrhosis [Recovered/Resolved]
  - Ascites [Recovered/Resolved]
  - Diarrhoea [Recovered/Resolved]
  - Thrombocytopenia [Not Recovered/Not Resolved]
